FAERS Safety Report 9236588 (Version 1)
Quarter: 2013Q2

REPORT INFORMATION
  Report Type: Spontaneous
  Country: GB (occurrence: GB)
  Receive Date: 20130417
  Receipt Date: 20130417
  Transmission Date: 20140414
  Serious: Yes (Other)
  Sender: FDA-Public Use
  Company Number: GB-ROCHE-1214479

PATIENT
  Age: 59 Year
  Sex: Male
  Weight: 82.55 kg

DRUGS (3)
  1. NAPROXEN [Suspect]
     Indication: EPICONDYLITIS
     Route: 048
     Dates: start: 20130322, end: 20130330
  2. LISINOPRIL [Concomitant]
  3. SIMVASTATIN [Concomitant]

REACTIONS (1)
  - Amnesia [Recovered/Resolved]
